FAERS Safety Report 24219341 (Version 3)
Quarter: 2024Q4

REPORT INFORMATION
  Report Type: Spontaneous
  Country: US (occurrence: US)
  Receive Date: 20240816
  Receipt Date: 20241024
  Transmission Date: 20250115
  Serious: No
  Sender: PFIZER
  Company Number: US-PFIZER INC-PV202400105428

PATIENT
  Age: 65 Year
  Sex: Female

DRUGS (2)
  1. IBRANCE [Suspect]
     Active Substance: PALBOCICLIB
     Dosage: TAKE 1 TABLET BY MOUTH EVERY DAY FOR 21 DAYS, THEN 7 DAYS OFF
     Route: 048
     Dates: start: 20240814
  2. ANASTROZOLE [Concomitant]
     Active Substance: ANASTROZOLE
     Dosage: 1 MG

REACTIONS (2)
  - Illness [Unknown]
  - Laboratory test abnormal [Not Recovered/Not Resolved]
